FAERS Safety Report 25814509 (Version 1)
Quarter: 2025Q3

REPORT INFORMATION
  Report Type: Spontaneous
  Country: US (occurrence: US)
  Receive Date: 20250917
  Receipt Date: 20250917
  Transmission Date: 20251021
  Serious: No
  Sender: GE HEALTHCARE
  Company Number: US-GE HEALTHCARE-2025CSU012695

PATIENT
  Sex: Female
  Weight: 58 kg

DRUGS (1)
  1. VIZAMYL [Suspect]
     Active Substance: FLUTEMETAMOL F-18
     Indication: Diagnostic procedure
     Route: 065
     Dates: start: 20250728, end: 20250728

REACTIONS (4)
  - Hot flush [Unknown]
  - Head discomfort [Unknown]
  - Chest discomfort [Unknown]
  - Facial discomfort [Unknown]

NARRATIVE: CASE EVENT DATE: 20250728
